FAERS Safety Report 15726370 (Version 3)
Quarter: 2020Q3

REPORT INFORMATION
  Report Type: Spontaneous
  Country: US (occurrence: US)
  Receive Date: 20181216
  Receipt Date: 20200922
  Transmission Date: 20201102
  Serious: Yes (Hospitalization)
  Sender: FDA-Public Use
  Company Number: US-JNJFOC-20181206652

PATIENT
  Age: 41 Year
  Sex: Female

DRUGS (4)
  1. XARELTO [Suspect]
     Active Substance: RIVAROXABAN
     Indication: DEEP VEIN THROMBOSIS
     Route: 048
     Dates: start: 20170216, end: 20170501
  2. XARELTO [Suspect]
     Active Substance: RIVAROXABAN
     Indication: ENDARTERECTOMY
     Route: 048
     Dates: start: 201705, end: 20170524
  3. PLAVIX [Suspect]
     Active Substance: CLOPIDOGREL BISULFATE
     Indication: CORONARY ARTERIAL STENT INSERTION
     Route: 048
     Dates: end: 20170501
  4. PLAVIX [Suspect]
     Active Substance: CLOPIDOGREL BISULFATE
     Indication: ARTERIOSCLEROSIS CORONARY ARTERY
     Route: 048
     Dates: start: 201705, end: 20170524

REACTIONS (3)
  - Gastrointestinal haemorrhage [Unknown]
  - Haematuria [Recovering/Resolving]
  - Uterine haemorrhage [Recovering/Resolving]

NARRATIVE: CASE EVENT DATE: 201704
